FAERS Safety Report 5478055-5 (Version None)
Quarter: 2007Q4

REPORT INFORMATION
  Report Type: 
  Country: None (occurrence: None)
  Receive Date: 20071005
  Receipt Date: 20070927
  Transmission Date: 20080405
  Serious: Yes (Other)
  Sender: FDA-Public Use
  Company Number: US-JNJFOC-20070900513

PATIENT
  Sex: Female
  Weight: 68.95 kg

DRUGS (11)
  1. REMICADE [Suspect]
     Indication: CROHN'S DISEASE
     Route: 042
  2. COMPAZINE [Suspect]
     Indication: DRUG USE FOR UNKNOWN INDICATION
  3. IMURAN [Concomitant]
  4. ASACOL [Concomitant]
  5. SYNTHROID [Concomitant]
  6. VISTARIL [Concomitant]
  7. ESTRADIOL [Concomitant]
  8. REMERON [Concomitant]
  9. ZYPREXA [Concomitant]
  10. GABAPENTIN [Concomitant]
     Indication: ANXIETY DISORDER
  11. FENTANYL TRANSDERMAL SYSTEM [Concomitant]

REACTIONS (5)
  - GAIT DISTURBANCE [None]
  - HALLUCINATION [None]
  - MUSCLE TWITCHING [None]
  - PARANOIA [None]
  - TREMOR [None]
